FAERS Safety Report 7675029-0 (Version None)
Quarter: 2011Q3

REPORT INFORMATION
  Report Type: 
  Country: None (occurrence: None)
  Receive Date: 20110810
  Receipt Date: 20110803
  Transmission Date: 20111222
  Serious: Yes (Hospitalization)
  Sender: FDA-Public Use
  Company Number: DE-TEVA-295207GER

PATIENT
  Sex: Female
  Weight: 61 kg

DRUGS (2)
  1. OXALIPLATIN [Suspect]
     Indication: CHEMOTHERAPY
     Route: 042
     Dates: start: 20110718
  2. EPIRUBICIN [Suspect]
     Indication: CHEMOTHERAPY
     Route: 040
     Dates: start: 20110718

REACTIONS (5)
  - RESPIRATORY DISTRESS [None]
  - ABDOMINAL DISCOMFORT [None]
  - STRIDOR [None]
  - PARAESTHESIA [None]
  - BLOOD URINE PRESENT [None]
